FAERS Safety Report 14340127 (Version 1)
Quarter: 2017Q4

REPORT INFORMATION
  Report Type: Spontaneous
  Country: IT (occurrence: IT)
  Receive Date: 20171231
  Receipt Date: 20171231
  Transmission Date: 20180321
  Serious: Yes (Hospitalization)
  Sender: FDA-Public Use
  Company Number: IT-TEVA-2017-IT-838250

PATIENT
  Age: 75 Year
  Sex: Female

DRUGS (5)
  1. PIPERACILLIN/TAZOBACTAM [Concomitant]
     Active Substance: PIPERACILLIN SODIUM\TAZOBACTAM SODIUM
     Route: 050
  2. FLUCONAZOLE. [Suspect]
     Active Substance: FLUCONAZOLE
     Indication: OESOPHAGEAL CANDIDIASIS
     Dosage: 100 MILLIGRAM DAILY; 100MG DAILY, FOR ALMOST 3 MONTHS
     Route: 048
  3. AMPHOTERICIN B. [Suspect]
     Active Substance: AMPHOTERICIN B
     Indication: SYSTEMIC CANDIDA
     Route: 065
  4. METHYLPREDNISOLONE. [Concomitant]
     Active Substance: METHYLPREDNISOLONE
     Dosage: DAILY
     Route: 050
  5. FLUCONAZOLE. [Suspect]
     Active Substance: FLUCONAZOLE
     Indication: OESOPHAGEAL CANDIDIASIS
     Dosage: 200 MILLIGRAM DAILY;
     Route: 048

REACTIONS (3)
  - Renal impairment [Recovered/Resolved]
  - Pathogen resistance [Recovered/Resolved]
  - Pneumonia [Recovered/Resolved]
